FAERS Safety Report 7142585-0 (Version None)
Quarter: 2010Q4

REPORT INFORMATION
  Report Type: 
  Country: None (occurrence: None)
  Receive Date: 20101207
  Receipt Date: 20101129
  Transmission Date: 20110411
  Serious: Yes (Other)
  Sender: FDA-Public Use
  Company Number: MX-SANOFI-AVENTIS-2010SA073214

PATIENT
  Sex: Male
  Weight: 100 kg

DRUGS (4)
  1. LANTUS [Suspect]
     Indication: TYPE 2 DIABETES MELLITUS
     Route: 058
     Dates: start: 20100101
  2. SHORANT [Suspect]
     Indication: TYPE 2 DIABETES MELLITUS
     Route: 058
     Dates: start: 20100101
  3. SAMYR [Concomitant]
     Route: 065
     Dates: start: 20101122
  4. AMINO ACIDS [Concomitant]
     Route: 065
     Dates: start: 20101122

REACTIONS (1)
  - WEIGHT DECREASED [None]
